FAERS Safety Report 21088365 (Version 3)
Quarter: 2022Q4

REPORT INFORMATION
  Report Type: Report from Study
  Country: US (occurrence: US)
  Receive Date: 20220715
  Receipt Date: 20221019
  Transmission Date: 20230112
  Serious: Yes (Hospitalization)
  Sender: FDA-Public Use
  Company Number: US-PFIZER INC-PV202200018509

PATIENT
  Age: 21 Year
  Sex: Male
  Weight: 48.3 kg

DRUGS (15)
  1. VINCRISTINE SULFATE [Suspect]
     Active Substance: VINCRISTINE SULFATE
     Indication: Acute lymphocytic leukaemia
     Dosage: 2 MG, AS DIRECTED
     Route: 042
     Dates: start: 20210716
  2. DOXORUBICIN HYDROCHLORIDE [Suspect]
     Active Substance: DOXORUBICIN HYDROCHLORIDE
     Indication: Acute lymphocytic leukaemia
     Dosage: 38 MG, AS DIRECTED
     Route: 042
     Dates: start: 20211119
  3. METHOTREXATE SODIUM [Suspect]
     Active Substance: METHOTREXATE SODIUM
     Indication: Acute lymphocytic leukaemia
     Dosage: 7500 MILLIGRAM AS DIRECTED
     Route: 042
     Dates: start: 20210910
  4. METHOTREXATE SODIUM [Suspect]
     Active Substance: METHOTREXATE SODIUM
     Dosage: 145-290MG AS DIRECTED
     Route: 042
     Dates: start: 20220120
  5. METHOTREXATE SODIUM [Suspect]
     Active Substance: METHOTREXATE SODIUM
     Indication: Acute lymphocytic leukaemia
     Dosage: 15 MG, AS DIRECTED
     Route: 037
     Dates: start: 20210702
  6. CYTARABINE [Suspect]
     Active Substance: CYTARABINE
     Indication: Acute lymphocytic leukaemia
     Dosage: 115 MG, AS DIRECTED (INTRAVENOUS)
     Route: 058
     Dates: start: 20210702
  7. RUXOLITINIB [Suspect]
     Active Substance: RUXOLITINIB
     Indication: Acute lymphocytic leukaemia
     Dosage: 75 MG, 2X/DAY DAYS 1-14 TABLET
     Route: 048
     Dates: start: 20210702
  8. MERCAPTOPURINE [Suspect]
     Active Substance: MERCAPTOPURINE
     Indication: Acute lymphocytic leukaemia
     Dosage: 775 MG/WEEK QD, TABLET
     Route: 048
     Dates: start: 20210702
  9. METHOTREXATE [Suspect]
     Active Substance: METHOTREXATE
     Indication: Acute lymphocytic leukaemia
     Dosage: 30 MG, WEEKLY TABLET
     Route: 048
     Dates: start: 20220325, end: 20220617
  10. PREDNISONE [Suspect]
     Active Substance: PREDNISONE
     Indication: Acute lymphocytic leukaemia
     Dosage: 30 MG, 2X/DAY DAYS 1-5 TABLET
     Route: 048
     Dates: start: 20220325
  11. DEXAMETHASONE [Suspect]
     Active Substance: DEXAMETHASONE
     Indication: Acute lymphocytic leukaemia
     Dosage: 8 MG, 2X/DAY TABLET
     Route: 048
     Dates: start: 20211119
  12. THIOGUANINE [Suspect]
     Active Substance: THIOGUANINE
     Indication: Acute lymphocytic leukaemia
     Dosage: TABLET, 640 MILLIGRAM/WEEK, QD
     Route: 048
     Dates: start: 20211223
  13. PEGASPARGASE [Suspect]
     Active Substance: PEGASPARGASE
     Indication: Acute lymphocytic leukaemia
     Dosage: 3600-3825 IU AS DIRECTED
     Route: 042
     Dates: start: 20210716
  14. CYCLOPHOSPHAMIDE [Suspect]
     Active Substance: CYCLOPHOSPHAMIDE
     Indication: Acute lymphocytic leukaemia
     Dosage: 1440-1530MG AS DIRECTED
     Route: 042
     Dates: start: 20210702
  15. LEUCOVORIN [Suspect]
     Active Substance: LEUCOVORIN
     Indication: Acute lymphocytic leukaemia
     Dosage: TABLET, 23 MILLIGRAM, PRN AFTER MTX
     Route: 048
     Dates: start: 20210912

REACTIONS (1)
  - Febrile neutropenia [Recovered/Resolved]

NARRATIVE: CASE EVENT DATE: 20220627
